FAERS Safety Report 12075013 (Version 1)
Quarter: 2016Q1

REPORT INFORMATION
  Report Type: Spontaneous
  Country: US (occurrence: US)
  Receive Date: 20160212
  Receipt Date: 20160212
  Transmission Date: 20160526
  Serious: Yes (Hospitalization, Other)
  Sender: FDA-Public Use
  Company Number: US-GLAXOSMITHKLINE-US2016020099

PATIENT
  Age: 66 Year
  Sex: Female

DRUGS (9)
  1. INDERAL [Concomitant]
     Active Substance: PROPRANOLOL HYDROCHLORIDE
  2. SOMA (ACETAMINOPHEN + ANHYDROUS CAFFEINE + CHLORZOXAZONE + THIAMINE DI [Concomitant]
  3. BREO ELLIPTA [Suspect]
     Active Substance: FLUTICASONE FUROATE\VILANTEROL TRIFENATATE
     Indication: DYSPNOEA
     Dosage: 100/25
     Route: 055
     Dates: start: 201505
  4. DIAZEPAM. [Concomitant]
     Active Substance: DIAZEPAM
  5. SPIRIVA [Concomitant]
     Active Substance: TIOTROPIUM BROMIDE MONOHYDRATE
  6. LOSARTAN. [Concomitant]
     Active Substance: LOSARTAN
  7. BREO ELLIPTA [Suspect]
     Active Substance: FLUTICASONE FUROATE\VILANTEROL TRIFENATATE
     Dosage: 200/25
  8. ATORVASTATIN [Concomitant]
     Active Substance: ATORVASTATIN
  9. VENTOLIN HFA [Suspect]
     Active Substance: ALBUTEROL SULFATE
     Indication: BRONCHITIS
     Route: 055
     Dates: start: 201502

REACTIONS (4)
  - Intensive care [Unknown]
  - Pneumonia [Recovered/Resolved]
  - Hot flush [Unknown]
  - Sinus disorder [Not Recovered/Not Resolved]

NARRATIVE: CASE EVENT DATE: 20150430
